FAERS Safety Report 8472650-7 (Version None)
Quarter: 2012Q2

REPORT INFORMATION
  Report Type: 
  Country: None (occurrence: None)
  Receive Date: 20120627
  Receipt Date: 20120515
  Transmission Date: 20120825
  Serious: No
  Sender: FDA-Public Use
  Company Number: US-AMGEN-USASP2012030962

PATIENT
  Age: 3 Year
  Sex: Female

DRUGS (1)
  1. PROCRIT [Suspect]
     Indication: RENAL FAILURE CHRONIC
     Dosage: 0.1 ML, QWK
     Route: 058
     Dates: start: 20110101

REACTIONS (1)
  - INCORRECT STORAGE OF DRUG [None]
